FAERS Safety Report 7293816 (Version 5)
Quarter: 2013Q3

REPORT INFORMATION
  Report Type: Report from Study
  Country: BR (occurrence: BR)
  Receive Date: 20100225
  Receipt Date: 20130719
  Transmission Date: 20140515
  Serious: Yes (Hospitalization)
  Sender: FDA-Public Use
  Company Number: BR-PFIZER INC-BR-WYE-H13732010

PATIENT
  Age: 68 Year
  Sex: Female
  Weight: 70 kg

DRUGS (4)
  1. TORISEL [Suspect]
     Indication: RENAL CELL CARCINOMA
     Dosage: 25 MG, WEEKLY
     Route: 042
     Dates: start: 20091223, end: 20100217
  2. AVASTIN [Suspect]
     Indication: RENAL CELL CARCINOMA
     Dosage: 10 MG/KG, EVERY OTHER WEEK
     Route: 042
     Dates: start: 20091223
  3. AVASTIN [Suspect]
     Dosage: 10 MG/KG,EVERY OTHER WEEK
     Route: 042
  4. AVASTIN [Suspect]
     Dosage: 10 MG/KG, EVERY OTHER WEEK
     Route: 042
     Dates: end: 20100217

REACTIONS (2)
  - Type 2 diabetes mellitus [Recovered/Resolved]
  - Hyperglycaemia [Recovered/Resolved]
